FAERS Safety Report 8278700-5 (Version None)
Quarter: 2012Q2

REPORT INFORMATION
  Report Type: 
  Country: None (occurrence: None)
  Receive Date: 20120412
  Receipt Date: 20120118
  Transmission Date: 20120825
  Serious: No
  Sender: FDA-Public Use
  Company Number: US-ASTRAZENECA-2009UW09399

PATIENT
  Age: 68 Year
  Sex: Female

DRUGS (2)
  1. NEXIUM [Suspect]
     Route: 048
  2. TANERALISASE [Concomitant]

REACTIONS (8)
  - OESOPHAGEAL PAIN [None]
  - DEPRESSION [None]
  - CHEST PAIN [None]
  - IRRITABLE BOWEL SYNDROME [None]
  - DRUG DOSE OMISSION [None]
  - FLATULENCE [None]
  - MALAISE [None]
  - GASTROOESOPHAGEAL REFLUX DISEASE [None]
